FAERS Safety Report 22726672 (Version 4)
Quarter: 2023Q4

REPORT INFORMATION
  Report Type: Report from Study
  Country: US (occurrence: US)
  Receive Date: 20230720
  Receipt Date: 20231218
  Transmission Date: 20240110
  Serious: Yes (Other)
  Sender: FDA-Public Use
  Company Number: US-ABBVIE-5333587

PATIENT
  Sex: Female

DRUGS (3)
  1. RINVOQ [Suspect]
     Active Substance: UPADACITINIB
     Indication: Psoriatic arthropathy
     Dosage: FORM STRENGTH: 15 MILLIGRAM?EXTENDED RELEASE
     Route: 048
     Dates: start: 20230520, end: 20230703
  2. RINVOQ [Suspect]
     Active Substance: UPADACITINIB
     Indication: Psoriatic arthropathy
     Dosage: FORM STRENGTH: 15 MILLIGRAM?EXTENDED RELEASE?LAST ADMIN DATE WAS 2023
     Route: 048
     Dates: start: 20230708
  3. RINVOQ [Suspect]
     Active Substance: UPADACITINIB
     Indication: Psoriatic arthropathy
     Route: 048

REACTIONS (9)
  - Subcutaneous abscess [Unknown]
  - Pain [Not Recovered/Not Resolved]
  - Eye infection [Recovered/Resolved]
  - Hordeolum [Not Recovered/Not Resolved]
  - Unevaluable event [Unknown]
  - Ear infection [Unknown]
  - Psoriatic arthropathy [Unknown]
  - Folliculitis [Unknown]
  - Cyst [Unknown]

NARRATIVE: CASE EVENT DATE: 20230101
